FAERS Safety Report 6791362-9 (Version None)
Quarter: 2010Q2

REPORT INFORMATION
  Report Type: 
  Country: None (occurrence: None)
  Receive Date: 20100624
  Receipt Date: 20100615
  Transmission Date: 20101027
  Serious: Yes (Hospitalization)
  Sender: FDA-Public Use
  Company Number: US-ABBOTT-10P-163-0648066-01

PATIENT
  Sex: Female
  Weight: 95.34 kg

DRUGS (9)
  1. HUMIRA [Suspect]
     Indication: PSORIASIS
     Route: 058
     Dates: start: 20090911
  2. HUMIRA [Concomitant]
     Dates: start: 20080321
  3. METHOTREXATE [Concomitant]
     Indication: PSORIASIS
     Dates: start: 20080808
  4. FOLIC ACID [Concomitant]
     Indication: METHAEMOGLOBINAEMIA
     Dates: start: 20090826
  5. FOLIC ACID [Concomitant]
     Indication: PROPHYLAXIS
  6. HYDROCORTISONE [Concomitant]
     Indication: PSORIASIS
     Dates: start: 20000101
  7. ACTOPLUS MET [Concomitant]
     Indication: DIABETES MELLITUS
     Dates: start: 20090101
  8. JANUVIA [Concomitant]
     Indication: DIABETES MELLITUS
     Dates: start: 20090101
  9. ATARAX [Concomitant]
     Indication: PSORIASIS
     Dates: start: 20070101

REACTIONS (1)
  - PSORIASIS [None]
